FAERS Safety Report 8444590-0 (Version None)
Quarter: 2012Q2

REPORT INFORMATION
  Report Type: 
  Country: None (occurrence: None)
  Receive Date: 20120323
  Receipt Date: 20111013
  Transmission Date: 20120825
  Serious: Yes (Other)
  Sender: FDA-Public Use
  Company Number: 163-21880-11060207

PATIENT
  Age: 73 Year
  Sex: Male

DRUGS (1)
  1. REVLIMID [Suspect]
     Indication: MULTIPLE MYELOMA
     Dosage: 25 MG, DAILY X 21 DAYS, PO
     Route: 048
     Dates: start: 20110523, end: 20110526

REACTIONS (5)
  - EYE SWELLING [None]
  - RASH [None]
  - ANAPHYLACTIC REACTION [None]
  - LOCAL SWELLING [None]
  - SWELLING FACE [None]
